FAERS Safety Report 11100143 (Version 1)
Quarter: 2015Q2

REPORT INFORMATION
  Report Type: Spontaneous
  Country: US (occurrence: None)
  Receive Date: 20150507
  Receipt Date: 20150507
  Transmission Date: 20150821
  Serious: No
  Sender: FDA-Public Use
  Company Number: None

PATIENT
  Age: 27 Year
  Sex: Male

DRUGS (1)
  1. STELARA [Suspect]
     Active Substance: USTEKINUMAB
     Indication: CROHN^S DISEASE
     Dosage: TWO SHOTS OVER 13 DAYS
     Dates: start: 20140122, end: 20140205

REACTIONS (1)
  - Drug-induced liver injury [None]

NARRATIVE: CASE EVENT DATE: 20140311
